FAERS Safety Report 5293265-8 (Version None)
Quarter: 2007Q2

REPORT INFORMATION
  Report Type: 
  Country: None (occurrence: None)
  Receive Date: 20070411
  Receipt Date: 20070404
  Transmission Date: 20071010
  Serious: Yes (Other)
  Sender: FDA-Public Use
  Company Number: 2007UW03532

PATIENT
  Age: 66 Year
  Sex: Male
  Weight: 93 kg

DRUGS (3)
  1. NEXIUM [Suspect]
     Indication: GASTROOESOPHAGEAL REFLUX DISEASE
     Route: 048
     Dates: start: 20030201
  2. LIPITOR [Concomitant]
  3. ALLEGRA D 24 HOUR [Concomitant]

REACTIONS (2)
  - ANGINA UNSTABLE [None]
  - DRUG EFFECT DECREASED [None]
